FAERS Safety Report 7474451-5 (Version None)
Quarter: 2011Q2

REPORT INFORMATION
  Report Type: 
  Country: None (occurrence: None)
  Receive Date: 20110512
  Receipt Date: 20110509
  Transmission Date: 20111010
  Serious: Yes (Hospitalization)
  Sender: FDA-Public Use
  Company Number: US-BRISTOL-MYERS SQUIBB COMPANY-15728504

PATIENT
  Age: 74 Year
  Sex: Male
  Weight: 74 kg

DRUGS (3)
  1. ERBITUX [Suspect]
     Indication: OESOPHAGEAL ADENOCARCINOMA
     Dosage: LAST DOSE ON 04MAY2011
     Dates: start: 20110411
  2. CISPLATIN [Suspect]
     Indication: OESOPHAGEAL ADENOCARCINOMA
     Dosage: COURSES:4 LAST DOSE ON 04MAY2011
     Dates: start: 20110411
  3. TAXOL [Suspect]
     Indication: OESOPHAGEAL ADENOCARCINOMA
     Dosage: COURSES:4 LAST DOSE ON 04MAY2011
     Dates: start: 20110411

REACTIONS (2)
  - SUPRAVENTRICULAR TACHYCARDIA [None]
  - DEHYDRATION [None]
